FAERS Safety Report 8483561-5 (Version None)
Quarter: 2012Q3

REPORT INFORMATION
  Report Type: 
  Country: None (occurrence: None)
  Receive Date: 20120702
  Receipt Date: 20120627
  Transmission Date: 20120928
  Serious: Yes (Hospitalization)
  Sender: FDA-Public Use
  Company Number: US-MERCK-1203USA00778

PATIENT
  Age: 48 Year
  Sex: Female

DRUGS (3)
  1. OS-CAL (CALCIUM CARBONATE) [Concomitant]
     Route: 048
     Dates: start: 20020101
  2. FOSAMAX [Suspect]
     Indication: MENOPAUSE
     Route: 048
     Dates: start: 20040101, end: 20090101
  3. FOSAMAX [Suspect]
     Indication: OSTEOPENIA
     Route: 048
     Dates: start: 20040101, end: 20090101

REACTIONS (6)
  - VITAMIN D DEFICIENCY [None]
  - DEPRESSION [None]
  - HORMONE LEVEL ABNORMAL [None]
  - TOOTH DISORDER [None]
  - FEMUR FRACTURE [None]
  - CALCIUM DEFICIENCY [None]
